FAERS Safety Report 9690255 (Version 2)
Quarter: 2013Q4

REPORT INFORMATION
  Report Type: Spontaneous
  Country: GB (occurrence: GB)
  Receive Date: 20131115
  Receipt Date: 20131223
  Transmission Date: 20140711
  Serious: Yes (Disabling)
  Sender: FDA-Public Use
  Company Number: GB-BAYER-2013-136896

PATIENT
  Age: 35 Year
  Sex: Female
  Weight: 110 kg

DRUGS (13)
  1. MIRENA [Suspect]
     Dosage: 20 MCG/24HR, CONT
     Route: 015
     Dates: start: 20120410
  2. AMITRIPTYLINE [Concomitant]
     Dosage: 50 MG, QD
  3. PREGABALIN [Concomitant]
     Dosage: 2 AT NIGHT, ONE IN THE MORNING
  4. NARAMIG [Concomitant]
     Indication: MIGRAINE
  5. PROSTAP [Concomitant]
  6. RAMIPRIL [Concomitant]
     Dosage: 1.25 MG, UNK
  7. DULOXETINE [Concomitant]
     Dosage: UNK UNK, QD
  8. OMEPRAZOLE [Concomitant]
     Dosage: DAILY DOSE 40 MG
  9. PARACETAMOL [Concomitant]
     Dosage: 1000 MG, QID
  10. TRAMADOL [Concomitant]
     Dosage: 1 OR 2 CAPSULES 4HOURLY IF REQUIRED
  11. DUAC [Concomitant]
     Dosage: UNK UNK, QD
  12. LAXIDO [Concomitant]
  13. FERROUS FUMARATE [Concomitant]
     Dosage: 210 MG, TID

REACTIONS (1)
  - Syncope [Not Recovered/Not Resolved]
